FAERS Safety Report 4676600-0 (Version None)
Quarter: 2005Q2

REPORT INFORMATION
  Report Type: 
  Country: None (occurrence: None)
  Receive Date: 20050527
  Receipt Date: 20050224
  Transmission Date: 20051028
  Serious: Yes (Hospitalization, Disabling)
  Sender: FDA-Public Use
  Company Number: US-ROCHE-396865

PATIENT
  Age: 31 Year
  Sex: Female
  Weight: 87.5 kg

DRUGS (1)
  1. ACCUTANE [Suspect]
     Indication: ACNE
     Route: 048
     Dates: start: 19970617, end: 19971015

REACTIONS (19)
  - BACK PAIN [None]
  - CARDIAC DISORDER [None]
  - GASTROOESOPHAGEAL REFLUX DISEASE [None]
  - GLOMERULONEPHRITIS FOCAL [None]
  - GOITRE [None]
  - HAEMATOCHEZIA [None]
  - HEADACHE [None]
  - INSOMNIA [None]
  - INTERTRIGO CANDIDA [None]
  - MULTI-ORGAN DISORDER [None]
  - OEDEMA PERIPHERAL [None]
  - PROTEINURIA [None]
  - RENAL DISORDER [None]
  - ROAD TRAFFIC ACCIDENT [None]
  - THYROID DISORDER [None]
  - URINARY TRACT INFECTION [None]
  - UTERINE DISORDER [None]
  - VAGINAL DISCHARGE [None]
  - WEIGHT INCREASED [None]
